FAERS Safety Report 25691273 (Version 1)
Quarter: 2025Q3

REPORT INFORMATION
  Report Type: Spontaneous
  Country: US (occurrence: US)
  Receive Date: 20250818
  Receipt Date: 20250818
  Transmission Date: 20251020
  Serious: Yes (Other)
  Sender: CATALYST PHARMA
  Company Number: US-CATALYST PHARMACEUTICALS, INC-US-CATA-25-01158

PATIENT
  Age: 61 Year
  Sex: Female
  Weight: 63.946 kg

DRUGS (21)
  1. FIRDAPSE [Suspect]
     Active Substance: AMIFAMPRIDINE PHOSPHATE
     Indication: Myasthenic syndrome
     Dosage: HALF A TABLET 4 TIMES PER DAY FOR 7 DAYS, THEN ONE TABLET 4 TIMES A DAY FOR 7 DAYS, THEN 1.5 TABLET
     Route: 048
     Dates: start: 20220809, end: 2022
  2. FIRDAPSE [Suspect]
     Active Substance: AMIFAMPRIDINE PHOSPHATE
     Dosage: 8 TABLETS TOTAL DAILY DIVIDED INTO 2 TABLETS FOR ONE DOSE AND 1.5 TABLETS FOR 4 DOSES
     Route: 048
     Dates: start: 20221203
  3. ELIQUIS [Concomitant]
     Active Substance: APIXABAN
     Indication: Antithrombin III deficiency
     Dosage: 5 MG TWICE DAILY
     Route: 065
  4. TRAMADOL [Concomitant]
     Active Substance: TRAMADOL
     Indication: Fibromyalgia
     Route: 065
  5. TYLENOL [Concomitant]
     Active Substance: ACETAMINOPHEN
     Indication: Arthritis
     Dosage: 1300 MG TWICE DAILY
     Route: 065
  6. PYRIDOSTIGMINE [Concomitant]
     Active Substance: PYRIDOSTIGMINE
     Indication: Myasthenic syndrome
     Dosage: 180 MG DAILY
     Route: 065
  7. PYRIDOSTIGMINE [Concomitant]
     Active Substance: PYRIDOSTIGMINE
     Indication: Myasthenic syndrome
     Dosage: 30 MG EVERY MORNING
     Route: 065
  8. DULOXETINE [Concomitant]
     Active Substance: DULOXETINE
     Indication: Fibromyalgia
     Dosage: 20 MG DAILY
     Route: 065
  9. DULOXETINE [Concomitant]
     Active Substance: DULOXETINE
     Dosage: 30 MG DAILY
     Route: 065
  10. HYDROXYCHLOROQUINE [Concomitant]
     Active Substance: HYDROXYCHLOROQUINE
     Indication: Arthritis
     Dosage: 300 MG DAILY
     Route: 065
  11. AZATHIOPRINE [Concomitant]
     Active Substance: AZATHIOPRINE
     Indication: Arthritis
     Dosage: 50 MG DAILY
     Route: 065
  12. ZEGERID [Concomitant]
     Active Substance: OMEPRAZOLE\SODIUM BICARBONATE
     Indication: Gastrooesophageal reflux disease
     Dosage: 20-1100 MG DAILY
     Route: 065
  13. PROBIOTICS NOS [Concomitant]
     Active Substance: PROBIOTICS NOS
     Indication: Gastrointestinal disorder prophylaxis
     Dosage: DAILY
     Route: 065
  14. AMPYRA EXTENDED RELEASE [Concomitant]
     Indication: Myasthenic syndrome
     Dosage: 10 MG DAILY
     Route: 065
  15. SUCRAID [Concomitant]
     Active Substance: SACROSIDASE
     Indication: Sucrase-isomaltase deficiency
     Dosage: 6 ML DAILY
     Route: 065
  16. CYCLOBENZAPRINE [Concomitant]
     Active Substance: CYCLOBENZAPRINE
     Indication: Muscle spasms
     Dosage: 10 MG THREE TIMES DAILY
     Route: 065
  17. CODEINE [Concomitant]
     Active Substance: CODEINE
     Indication: Pain
     Dosage: 15 MG FOUR TIMES A DAY
     Route: 065
  18. PREDNISONE [Concomitant]
     Active Substance: PREDNISONE
     Indication: Myasthenic syndrome
     Route: 065
  19. IPRATROPIUM BROMIDE [Concomitant]
     Active Substance: IPRATROPIUM BROMIDE
     Indication: Chronic obstructive pulmonary disease
     Dosage: TWICE DAILY
     Route: 055
  20. OMEPRAZOLE [Concomitant]
     Active Substance: OMEPRAZOLE
     Indication: Gastrooesophageal reflux disease
     Dosage: 40 MG TWICE DAILY
     Route: 065
  21. CEVIMELINE [Concomitant]
     Active Substance: CEVIMELINE
     Indication: Dry mouth
     Dosage: 30 MG THREE TIMES DAILY
     Route: 065

REACTIONS (2)
  - Epistaxis [Recovered/Resolved]
  - Product dose omission issue [Unknown]

NARRATIVE: CASE EVENT DATE: 20250701
